FAERS Safety Report 4556875-9 (Version None)
Quarter: 2005Q1

REPORT INFORMATION
  Report Type: 
  Country: None (occurrence: None)
  Receive Date: 20050103
  Receipt Date: 20040622
  Transmission Date: 20050727
  Serious: Yes (Other)
  Sender: FDA-Public Use
  Company Number: 2004UW12942

PATIENT
  Age: 76 Year
  Sex: Female
  Weight: 79.3795 kg

DRUGS (8)
  1. CRESTOR [Suspect]
     Indication: HYPERCHOLESTEROLAEMIA
     Dosage: 5 MG PO
     Route: 048
     Dates: start: 20040301
  2. LEVOTHROID [Concomitant]
  3. ISOSORBIDE [Concomitant]
  4. UNSPECIFIED [Concomitant]
  5. METFORMIN HCL [Concomitant]
  6. GLYBURIDE [Concomitant]
  7. PREVACID [Concomitant]
  8. PLAVIX [Concomitant]

REACTIONS (1)
  - MUSCLE SPASMS [None]
